FAERS Safety Report 18442568 (Version 2)
Quarter: 2020Q4

REPORT INFORMATION
  Report Type: Spontaneous
  Country: US (occurrence: US)
  Receive Date: 20201029
  Receipt Date: 20201203
  Transmission Date: 20210114
  Serious: No
  Sender: FDA-Public Use
  Company Number: US-PFIZER INC-2020419337

PATIENT
  Age: 69 Year
  Sex: Male
  Weight: 92.97 kg

DRUGS (1)
  1. INLYTA [Suspect]
     Active Substance: AXITINIB
     Indication: RENAL CELL CARCINOMA
     Dosage: 5 MG, 2X/DAY [12 HOURS APART]
     Route: 048
     Dates: start: 202010

REACTIONS (4)
  - Heart rate increased [Recovering/Resolving]
  - Cough [Unknown]
  - Dysphonia [Unknown]
  - Blood pressure increased [Recovering/Resolving]
